FAERS Safety Report 4598805-X (Version None)
Quarter: 2005Q1

REPORT INFORMATION
  Report Type: 
  Country: None (occurrence: None)
  Receive Date: 20050304
  Receipt Date: 20050304
  Transmission Date: 20050727
  Serious: Yes (Death)
  Sender: FDA-Public Use
  Company Number: None

PATIENT
  Age: 75 Year

DRUGS (1)
  1. EPINEPHRINE [Suspect]
     Dates: end: 20030101

REACTIONS (1)
  - MEDICATION ERROR [None]
